FAERS Safety Report 12353854 (Version 2)
Quarter: 2016Q3

REPORT INFORMATION
  Report Type: Spontaneous
  Country: US (occurrence: US)
  Receive Date: 20160511
  Receipt Date: 20160704
  Transmission Date: 20161109
  Serious: No
  Sender: FDA-Public Use
  Company Number: US-JNJFOC-20160319991

PATIENT
  Sex: Female
  Weight: 61.24 kg

DRUGS (22)
  1. VITAMIN K [Concomitant]
     Active Substance: PHYTONADIONE
     Indication: MUSCLE DISORDER
     Route: 048
     Dates: start: 1995
  2. ULTRAM ER [Suspect]
     Active Substance: TRAMADOL HYDROCHLORIDE
     Indication: PAIN
     Dosage: AT NIGHT
     Route: 048
  3. TURMERIC [Concomitant]
     Active Substance: TURMERIC
     Indication: ARTHROPATHY
     Route: 048
     Dates: start: 2004
  4. VITAMIN K [Concomitant]
     Active Substance: PHYTONADIONE
     Indication: ARTHROPATHY
     Route: 048
     Dates: start: 1995
  5. MIRALAX [Concomitant]
     Active Substance: POLYETHYLENE GLYCOL 3350
     Indication: CONSTIPATION
     Route: 048
     Dates: start: 2000
  6. COQ 10 [Concomitant]
     Active Substance: UBIDECARENONE
     Indication: CARDIOVASCULAR DISORDER
     Route: 048
     Dates: start: 2000
  7. S-ADENOSYLMETHIONINE SULFATE P-TOLUENESULFONATE [Concomitant]
     Active Substance: ADEMETIONINE SULFATE TOSILATE
     Indication: FIBROMYALGIA
     Route: 048
     Dates: start: 1994
  8. ZINC [Concomitant]
     Active Substance: ZINC\ZINC CHLORIDE
     Indication: IMMUNE SYSTEM DISORDER
     Route: 048
     Dates: start: 2004
  9. GLUCOSAMINE/MSM [Concomitant]
     Indication: ARTHROPATHY
     Route: 048
     Dates: start: 2004
  10. PREVACID [Concomitant]
     Active Substance: LANSOPRAZOLE
     Indication: OESOPHAGITIS
     Route: 048
  11. CALCIUM + VIT D [Concomitant]
     Active Substance: CALCIUM\VITAMIN D
     Indication: ARTHROPATHY
     Route: 048
     Dates: start: 1995
  12. ULTRAM ER [Suspect]
     Active Substance: TRAMADOL HYDROCHLORIDE
     Indication: PAIN
     Dosage: AT NIGHT
     Route: 048
     Dates: start: 2010
  13. RESVERATROL [Concomitant]
     Active Substance: RESVERATROL
     Indication: PROPHYLAXIS
     Route: 048
     Dates: start: 2016
  14. CALCIUM + VIT D [Concomitant]
     Active Substance: CALCIUM\VITAMIN D
     Indication: MUSCLE DISORDER
     Route: 048
     Dates: start: 1995
  15. CALCIUM + VIT D [Concomitant]
     Active Substance: CALCIUM\VITAMIN D
     Indication: BONE DISORDER
     Route: 048
     Dates: start: 1995
  16. ULTRAM ER [Suspect]
     Active Substance: TRAMADOL HYDROCHLORIDE
     Indication: PAIN
     Dosage: AT NIGHT
     Route: 048
     Dates: end: 201603
  17. TRAMADOL HYDROCHLORIDE. [Suspect]
     Active Substance: TRAMADOL HYDROCHLORIDE
     Indication: PAIN
  18. RESVERATROL [Concomitant]
     Active Substance: RESVERATROL
     Indication: CARDIOVASCULAR DISORDER
     Route: 048
     Dates: start: 2016
  19. COQ 10 [Concomitant]
     Active Substance: UBIDECARENONE
     Indication: FIBROMYALGIA
     Route: 048
     Dates: start: 2000
  20. VITAMIN K [Concomitant]
     Active Substance: PHYTONADIONE
     Indication: BONE DISORDER
     Route: 048
     Dates: start: 1995
  21. ULTRAM [Suspect]
     Active Substance: TRAMADOL HYDROCHLORIDE
     Indication: PAIN
     Dosage: 3 TO 4 TIMES DAILY, STARTED IN 1990^S
     Route: 048
  22. CHONDROITIN [Concomitant]
     Active Substance: CHONDROITIN
     Indication: ARTHROPATHY
     Route: 048
     Dates: start: 2004

REACTIONS (4)
  - Fatigue [Not Recovered/Not Resolved]
  - Weight decreased [Not Recovered/Not Resolved]
  - Activities of daily living impaired [Not Recovered/Not Resolved]
  - Breakthrough pain [Not Recovered/Not Resolved]

NARRATIVE: CASE EVENT DATE: 2010
